FAERS Safety Report 4648453-8 (Version None)
Quarter: 2005Q2

REPORT INFORMATION
  Report Type: 
  Country: None (occurrence: None)
  Receive Date: 20050427
  Receipt Date: 20050420
  Transmission Date: 20051028
  Serious: Yes (Death, Other)
  Sender: FDA-Public Use
  Company Number: FR_050205793

PATIENT
  Age: 65 Year
  Sex: Female
  Weight: 70 kg

DRUGS (4)
  1. EVISTA [Suspect]
     Indication: OSTEOPOROSIS
     Dosage: 60 MG DAY
     Dates: start: 20021201, end: 20050106
  2. FOSAMAX [Concomitant]
  3. AVLOCARDYL (PROPANOLOL) [Concomitant]
  4. ZESTRIL [Concomitant]

REACTIONS (6)
  - DEEP VEIN THROMBOSIS [None]
  - FACIAL PALSY [None]
  - HYPERTENSIVE CRISIS [None]
  - ISCHAEMIC STROKE [None]
  - PANCREATIC CARCINOMA [None]
  - THROMBOPHLEBITIS SUPERFICIAL [None]
